FAERS Safety Report 18423884 (Version 1)
Quarter: 2020Q4

REPORT INFORMATION
  Report Type: Spontaneous
  Country: US (occurrence: US)
  Receive Date: 20201025
  Receipt Date: 20201025
  Transmission Date: 20210114
  Serious: No
  Sender: FDA-Public Use
  Company Number: US-BIOGEN-2020BI00937288

PATIENT
  Sex: Female
  Weight: 102.15 kg

DRUGS (2)
  1. TECFIDERA [Suspect]
     Active Substance: DIMETHYL FUMARATE
     Indication: MULTIPLE SCLEROSIS
     Route: 048
  2. NAFCILLIN [Concomitant]
     Active Substance: NAFCILLIN SODIUM
     Route: 065

REACTIONS (1)
  - Tendinous contracture [Unknown]
